FAERS Safety Report 5389838-4 (Version None)
Quarter: 2007Q3

REPORT INFORMATION
  Report Type: 
  Country: None (occurrence: None)
  Receive Date: 20070713
  Receipt Date: 20070628
  Transmission Date: 20080115
  Serious: Yes (Hospitalization)
  Sender: FDA-Public Use
  Company Number: DSA_30166_2007

PATIENT
  Age: 80 Year
  Sex: Male

DRUGS (7)
  1. ENALAPRIL MALEATE [Suspect]
     Indication: CARDIAC FAILURE CONGESTIVE
     Dosage: 5 MG QD ORAL
     Route: 048
  2. ALDACTONE [Suspect]
     Indication: CARDIAC FAILURE CONGESTIVE
     Dosage: (25 MG QD ORAL)
     Route: 048
     Dates: end: 20070215
  3. SEGURIL (SEGURIL) 40 MG [Suspect]
     Indication: CARDIAC FAILURE CONGESTIVE
     Dosage: (40 MG QD ORAL)
     Route: 048
  4. AUGMENTIN '250' [Suspect]
     Indication: INFECTION
  5. TARDYFERON /00023503/ [Concomitant]
  6. FRAXIPARINA [Concomitant]
  7. NIMUSTINE [Concomitant]

REACTIONS (4)
  - DIARRHOEA [None]
  - DRUG INTERACTION [None]
  - LOCALISED INFECTION [None]
  - RENAL FAILURE ACUTE [None]
